FAERS Safety Report 4328037-1 (Version None)
Quarter: 2004Q1

REPORT INFORMATION
  Report Type: 
  Country: None (occurrence: None)
  Receive Date: 20040325
  Receipt Date: 20040315
  Transmission Date: 20041129
  Serious: Yes (Hospitalization)
  Sender: FDA-Public Use
  Company Number: US-JNJFOC-20040303619

PATIENT
  Age: 67 Year
  Sex: Female

DRUGS (12)
  1. INFLIXIMAB LYOPHILIZED POWDER (INFLIXIMAB, RECOMBINANT) [Suspect]
     Indication: RHEUMATOID ARTHRITIS
     Dosage: INTRAVENOUS
     Route: 042
     Dates: start: 20030528, end: 20030528
  2. AZATHIOPRINE [Concomitant]
  3. PLAQUENIL [Concomitant]
  4. FOSAMAX [Concomitant]
  5. OGEN (ESTROPIATE) [Concomitant]
  6. LIBRAX [Concomitant]
  7. LORTAB [Concomitant]
  8. SOMA [Concomitant]
  9. CALTRATE (CALCIUM CARBONATE) [Concomitant]
  10. ASPIRIN [Concomitant]
  11. TUMS (CALCIUM CARBONATE) [Concomitant]
  12. MOTRIN [Concomitant]

REACTIONS (1)
  - DIVERTICULITIS [None]
